FAERS Safety Report 9704848 (Version 1)
Quarter: 2013Q4

REPORT INFORMATION
  Report Type: Spontaneous
  Country: US (occurrence: US)
  Receive Date: 20131122
  Receipt Date: 20131122
  Transmission Date: 20140711
  Serious: Yes (Hospitalization, Other)
  Sender: FDA-Public Use
  Company Number: US-BRISTOL-MYERS SQUIBB COMPANY-19839000

PATIENT
  Age: 44 Year
  Sex: Male

DRUGS (3)
  1. ABILIFY [Suspect]
     Indication: SCHIZOPHRENIA
     Route: 048
  2. ABILIFY MAINTENA INJECTION [Suspect]
     Indication: SCHIZOPHRENIA
     Route: 065
     Dates: start: 201310
  3. COGENTIN [Concomitant]
     Route: 048

REACTIONS (6)
  - Psychotic disorder [Unknown]
  - Hallucination [Unknown]
  - Blood pressure decreased [Unknown]
  - Abnormal behaviour [Unknown]
  - Agitation [Unknown]
  - Hyperhidrosis [Unknown]
